FAERS Safety Report 22231475 (Version 4)
Quarter: 2023Q2

REPORT INFORMATION
  Report Type: Spontaneous
  Country: AE (occurrence: AE)
  Receive Date: 20230420
  Receipt Date: 20230622
  Transmission Date: 20230722
  Serious: Yes (Hospitalization, Other)
  Sender: FDA-Public Use
  Company Number: AE-PFIZER INC-PV202300064080

PATIENT
  Age: 77 Year
  Sex: Female

DRUGS (1)
  1. ENBREL [Suspect]
     Active Substance: ETANERCEPT
     Indication: Rheumatoid arthritis
     Dosage: 50 MG, WEEKLY
     Route: 058
     Dates: start: 20221013

REACTIONS (8)
  - Heart rate decreased [Unknown]
  - Pulmonary oedema [Unknown]
  - Sepsis [Unknown]
  - Cardiac disorder [Unknown]
  - Pulmonary congestion [Unknown]
  - Influenza [Recovered/Resolved with Sequelae]
  - Bacterial infection [Unknown]
  - Malaise [Unknown]

NARRATIVE: CASE EVENT DATE: 20230406
